FAERS Safety Report 4265443-8 (Version None)
Quarter: 2004Q1

REPORT INFORMATION
  Report Type: 
  Country: None (occurrence: None)
  Receive Date: 20040107
  Receipt Date: 20040107
  Transmission Date: 20041129
  Serious: No
  Sender: FDA-Public Use
  Company Number: None

PATIENT

DRUGS (4)
  1. TIKOSYN [Suspect]
  2. BETAPACE [Suspect]
     Dosage: TABLET
  3. GLUCOTROL [Suspect]
     Dosage: TABLET
  4. FLOMAX [Suspect]
     Dosage: CAPSULE

REACTIONS (5)
  - BLOOD CREATININE INCREASED [None]
  - BLOOD GLUCOSE FLUCTUATION [None]
  - CREATININE RENAL CLEARANCE INCREASED [None]
  - ELECTROCARDIOGRAM QT CORRECTED INTERVAL PROLONGED [None]
  - MEDICATION ERROR [None]
